FAERS Safety Report 22191479 (Version 1)
Quarter: 2023Q2

REPORT INFORMATION
  Report Type: Spontaneous
  Country: SI (occurrence: SI)
  Receive Date: 20230410
  Receipt Date: 20230410
  Transmission Date: 20230721
  Serious: Yes (Death, Hospitalization, Other)
  Sender: FDA-Public Use
  Company Number: SI-MYLANLABS-2023M1036583

PATIENT
  Age: 45 Year
  Sex: Male

DRUGS (11)
  1. PACLITAXEL [Suspect]
     Active Substance: PACLITAXEL
     Indication: Adenocarcinoma gastric
     Dosage: UNK, CYCLE (3 CYCLES)
     Route: 065
     Dates: start: 201403, end: 201405
  2. PACLITAXEL [Suspect]
     Active Substance: PACLITAXEL
     Indication: Adenocarcinoma gastric
     Dosage: UNK, CYCLE, 3 CYCLES
     Route: 065
     Dates: start: 201703
  3. OXALIPLATIN [Suspect]
     Active Substance: OXALIPLATIN
     Indication: Adenocarcinoma gastric
     Dosage: UNK, CYCLE (3 CYCLES )
     Route: 065
     Dates: start: 201403, end: 201405
  4. CAPECITABINE [Suspect]
     Active Substance: CAPECITABINE
     Indication: Adenocarcinoma gastric
     Dosage: UNK
     Route: 065
     Dates: start: 201103, end: 201107
  5. CAPECITABINE [Suspect]
     Active Substance: CAPECITABINE
     Dosage: UNK, CYCLE (ONE CYCLE)
     Route: 065
  6. FLUOROURACIL [Suspect]
     Active Substance: FLUOROURACIL
     Indication: Adenocarcinoma gastric
     Dosage: UNK
     Route: 065
  7. FLUOROURACIL [Suspect]
     Active Substance: FLUOROURACIL
     Dosage: UNK, CYCLE (3 CYCLES)
     Route: 065
     Dates: start: 201403, end: 201405
  8. RAMUCIRUMAB [Suspect]
     Active Substance: RAMUCIRUMAB
     Indication: Adenocarcinoma gastric
     Dosage: UNK, CYCLE (3 CYCLES)
     Route: 065
     Dates: start: 201703
  9. RAMUCIRUMAB [Suspect]
     Active Substance: RAMUCIRUMAB
     Dosage: UNK, MAINTENANCE THERAPY
     Route: 065
  10. EPIRUBICIN [Concomitant]
     Active Substance: EPIRUBICIN
     Indication: Adenocarcinoma gastric
     Dosage: UNK, CYCLE (1 CYCLE)
     Route: 065
  11. CISPLATIN [Concomitant]
     Active Substance: CISPLATIN
     Indication: Adenocarcinoma gastric
     Dosage: UNK, 1 CYCLES
     Route: 065

REACTIONS (4)
  - Drug ineffective [Fatal]
  - Disease progression [Fatal]
  - Febrile neutropenia [Unknown]
  - Stomatitis [Unknown]
